FAERS Safety Report 6560666-7 (Version None)
Quarter: 2010Q1

REPORT INFORMATION
  Report Type: 
  Country: None (occurrence: None)
  Receive Date: 20100129
  Receipt Date: 20050325
  Transmission Date: 20100710
  Serious: No
  Sender: FDA-Public Use
  Company Number: US-ALLERGAN-200502420

PATIENT
  Age: 36 Year
  Sex: Female

DRUGS (1)
  1. BOTOX COSMETIC [Suspect]
     Indication: SKIN WRINKLING
     Dosage: FOREHEAD
     Route: 030

REACTIONS (8)
  - HEADACHE [None]
  - INJECTION SITE PAIN [None]
  - INJECTION SITE REACTION [None]
  - NAUSEA [None]
  - NEOPLASM SKIN [None]
  - PERIORBITAL OEDEMA [None]
  - THERAPEUTIC RESPONSE DECREASED [None]
  - VISION BLURRED [None]
